FAERS Safety Report 8121112-5 (Version None)
Quarter: 2012Q1

REPORT INFORMATION
  Report Type: 
  Country: None (occurrence: None)
  Receive Date: 20120208
  Receipt Date: 20120202
  Transmission Date: 20120608
  Serious: Yes (Hospitalization)
  Sender: FDA-Public Use
  Company Number: US-BRISTOL-MYERS SQUIBB COMPANY-12206793

PATIENT
  Age: 84 Year
  Sex: Female
  Weight: 77 kg

DRUGS (5)
  1. ASPIRIN [Suspect]
     Dosage: 1 DF : 2 NOS
  2. LOTREL [Concomitant]
  3. GLUCOPHAGE XR [Suspect]
     Indication: TYPE 2 DIABETES MELLITUS
     Dosage: SEVERAL YEARS AGO,1000-1500 MG/DAILY,2 PILLS IN MRNG, 1 PILL IN EVENING
     Route: 048
     Dates: start: 20020805
  4. VITAMIN [Concomitant]
  5. LIPITOR [Concomitant]

REACTIONS (4)
  - ANAEMIA [None]
  - RASH PRURITIC [None]
  - DIARRHOEA [None]
  - FEELING HOT [None]
